FAERS Safety Report 4801303-9 (Version None)
Quarter: 2005Q4

REPORT INFORMATION
  Report Type: 
  Country: None (occurrence: None)
  Receive Date: 20051017
  Receipt Date: 20051006
  Transmission Date: 20060501
  Serious: Yes (Hospitalization)
  Sender: FDA-Public Use
  Company Number: US-MERCK-0510USA07074

PATIENT
  Age: 76 Year
  Sex: Male

DRUGS (3)
  1. TIAMATE [Suspect]
     Indication: VASCULAR BYPASS GRAFT
     Route: 065
  2. TIAMATE [Suspect]
     Route: 065
  3. HEPARIN [Concomitant]
     Route: 042

REACTIONS (1)
  - SMALL INTESTINAL OBSTRUCTION [None]
